FAERS Safety Report 6779500-5 (Version None)
Quarter: 2010Q2

REPORT INFORMATION
  Report Type: 
  Country: None (occurrence: None)
  Receive Date: 20100618
  Receipt Date: 20100608
  Transmission Date: 20101027
  Serious: Yes (Hospitalization)
  Sender: FDA-Public Use
  Company Number: DE-NAPPMUNDI-DEU-2010-0006234

PATIENT
  Sex: Male

DRUGS (15)
  1. TARGIN  RETARDTABLETTEN [Suspect]
     Indication: PAIN
     Dosage: UNK
  2. TARGIN  RETARDTABLETTEN [Suspect]
     Indication: ARTHRALGIA
  3. OXYCODONE HYDROCHLORIDE [Suspect]
     Indication: PAIN
     Dosage: UNK
  4. OXYCODONE HYDROCHLORIDE [Suspect]
     Indication: ARTHRALGIA
  5. ACTIQ [Suspect]
  6. LAXANS                             /00064401/ [Concomitant]
  7. ZOPLICONE [Concomitant]
  8. MOXONIDIN [Concomitant]
  9. TAMSULOSIN HCL [Concomitant]
  10. TORSEMIDE [Concomitant]
  11. ALDACTONE [Concomitant]
  12. TIAPRIDEX [Concomitant]
  13. SPIRIVA [Concomitant]
  14. SYMBICORT [Concomitant]
  15. ATACAND [Concomitant]

REACTIONS (4)
  - CONSTIPATION [None]
  - HYPERAESTHESIA [None]
  - HYPERKINESIA [None]
  - THERAPY REGIMEN CHANGED [None]
